FAERS Safety Report 12941379 (Version 1)
Quarter: 2016Q4

REPORT INFORMATION
  Report Type: Report from Study
  Country: CO (occurrence: CO)
  Receive Date: 20161114
  Receipt Date: 20161114
  Transmission Date: 20170207
  Serious: Yes (Death)
  Sender: FDA-Public Use
  Company Number: CO-ASTRAZENECA-2016SF18170

PATIENT
  Age: 24554 Day
  Sex: Male
  Weight: 72 kg

DRUGS (1)
  1. IRESSA [Suspect]
     Active Substance: GEFITINIB
     Indication: LUNG NEOPLASM MALIGNANT
     Route: 048
     Dates: start: 20160830, end: 20161014

REACTIONS (1)
  - Death [Fatal]

NARRATIVE: CASE EVENT DATE: 20161014
